FAERS Safety Report 5584896-6 (Version None)
Quarter: 2008Q1

REPORT INFORMATION
  Report Type: 
  Country: None (occurrence: None)
  Receive Date: 20080104
  Receipt Date: 20071227
  Transmission Date: 20080703
  Serious: Yes (Other)
  Sender: FDA-Public Use
  Company Number: TPA2007A02031

PATIENT
  Age: 63 Year
  Sex: Female
  Weight: 104.3273 kg

DRUGS (10)
  1. ACTOS [Suspect]
     Indication: TYPE 2 DIABETES MELLITUS
     Dosage: 15 MG, 1 IN 1 D, PER ORAL; 30 MG, 1 IN 1 D, PER ORAL
     Route: 048
     Dates: start: 20060112, end: 20070222
  2. ACTOS [Suspect]
     Indication: TYPE 2 DIABETES MELLITUS
     Dosage: 15 MG, 1 IN 1 D, PER ORAL; 30 MG, 1 IN 1 D, PER ORAL
     Route: 048
     Dates: start: 20070222, end: 20070501
  3. ACTOS [Suspect]
     Indication: TYPE 2 DIABETES MELLITUS
     Dosage: 15 MG, 1 IN 1 D, PER ORAL; 30 MG, 1 IN 1 D, PER ORAL
     Route: 048
     Dates: start: 20070501, end: 20070613
  4. OXYTROL [Concomitant]
  5. DETROL LA [Concomitant]
  6. FLOMAX [Concomitant]
  7. ASPIRIN (ACETYLSALTCYLIC ACID) [Concomitant]
  8. ZETIA [Concomitant]
  9. PREMARIN [Concomitant]
  10. CELEXA (CTTALOPRAM HYDROBROMIDE) [Concomitant]

REACTIONS (13)
  - ABDOMINAL INFECTION [None]
  - ANXIETY [None]
  - BLOOD GLUCOSE DECREASED [None]
  - COUGH [None]
  - DIZZINESS [None]
  - EAR INFECTION [None]
  - HERNIA OBSTRUCTIVE [None]
  - MALAISE [None]
  - OEDEMA PERIPHERAL [None]
  - PHARYNGITIS [None]
  - PHARYNGOLARYNGEAL PAIN [None]
  - SOMNOLENCE [None]
  - WEIGHT INCREASED [None]
